FAERS Safety Report 11235662 (Version 2)
Quarter: 2015Q3

REPORT INFORMATION
  Report Type: Spontaneous
  Country: US (occurrence: US)
  Receive Date: 20150702
  Receipt Date: 20150806
  Transmission Date: 20151125
  Serious: No
  Sender: FDA-Public Use
  Company Number: US-SHIRE-US201506693

PATIENT
  Sex: Female

DRUGS (1)
  1. LIALDA [Suspect]
     Active Substance: MESALAMINE
     Indication: PRODUCT USED FOR UNKNOWN INDICATION
     Dosage: 4.8 G, 1X/DAY:QD, ONCE A DAY AT LUNCH
     Route: 048

REACTIONS (3)
  - No adverse event [Recovered/Resolved]
  - Product odour abnormal [Recovered/Resolved]
  - Product quality issue [Unknown]
